FAERS Safety Report 9002933 (Version 2)
Quarter: 2013Q2

REPORT INFORMATION
  Report Type: Spontaneous
  Country: US (occurrence: None)
  Receive Date: 20120508
  Receipt Date: 20120709
  Transmission Date: 20140414
  Serious: No
  Sender: FDA-Public Use
  Company Number: 2012HGS-003122

PATIENT
  Age: 74 Year
  Sex: Female
  Weight: 73.03 kg

DRUGS (13)
  1. BENLYSTA [Suspect]
     Indication: SYSTEMIC LUPUS ERYTHEMATOSUS
     Dosage: 1 IN 4 WK
     Route: 042
     Dates: start: 20110906
  2. PLAQUENIL (HYDROXYCHLOROQUINE PHOSPHATE) [Concomitant]
  3. PREDNISONE (PREDNISONE) [Concomitant]
  4. COUMADIN (WARFARIN SODIUM) [Concomitant]
  5. VERAPAMIL (VERAPAMIL) [Concomitant]
  6. FOLIC ACID (FOLIC ACID) [Concomitant]
  7. GABAPENTIN (GABAPENTIN) [Concomitant]
  8. LORATIDINE [Concomitant]
  9. CALCIUM (CALCIUM) [Concomitant]
  10. VITAMIN D (VITAMIN D) [Concomitant]
  11. ALEDRONATE SODIUIM (ALENDRONATE SODIUM) [Concomitant]
  12. COSOPT (COSOPT) (TIMOLOL, MALEATE, DORZOLAMIDE HYDROCHLORIDE) [Concomitant]
  13. LUMIGAN (BIMATOPROST) [Concomitant]

REACTIONS (1)
  - Asthenia [None]
